FAERS Safety Report 6617354-8 (Version None)
Quarter: 2010Q1

REPORT INFORMATION
  Report Type: 
  Country: None (occurrence: None)
  Receive Date: 20100307
  Receipt Date: 20100122
  Transmission Date: 20100710
  Serious: No
  Sender: FDA-Public Use
  Company Number: US-BAYER-201011791NA

PATIENT
  Sex: Female

DRUGS (1)
  1. BETASERON [Suspect]
     Indication: DRUG USE FOR UNKNOWN INDICATION
     Route: 058
     Dates: start: 19940101, end: 20090701

REACTIONS (4)
  - BODY TEMPERATURE INCREASED [None]
  - CHILLS [None]
  - HYPERTENSION [None]
  - URINARY TRACT INFECTION [None]
